FAERS Safety Report 4406643-3 (Version None)
Quarter: 2004Q3

REPORT INFORMATION
  Report Type: 
  Country: None (occurrence: None)
  Receive Date: 20040716
  Receipt Date: 20030901
  Transmission Date: 20050211
  Serious: Yes (Hospitalization)
  Sender: FDA-Public Use
  Company Number: REFE00204002335

PATIENT
  Age: 49 Year
  Sex: Male
  Weight: 91 kg

DRUGS (4)
  1. CANNADOR (CANNADOR) [Suspect]
     Indication: MULTIPLE SCLEROSIS
     Dosage: 25 MG DAILY PO,   25 MG DAILY PO
     Route: 048
     Dates: start: 20010809, end: 20010907
  2. BACLOFEN [Concomitant]
  3. ZOLPIDEM TARTRATE [Concomitant]
  4. CO-PROXAMOL [Concomitant]

REACTIONS (2)
  - DUODENAL ULCER [None]
  - GASTRITIS [None]
